FAERS Safety Report 12193666 (Version 1)
Quarter: 2016Q1

REPORT INFORMATION
  Report Type: Spontaneous
  Country: PT (occurrence: PT)
  Receive Date: 20160321
  Receipt Date: 20160321
  Transmission Date: 20160526
  Serious: Yes (Other)
  Sender: FDA-Public Use
  Company Number: PT-JNJFOC-20160314579

PATIENT
  Age: 7 Year
  Sex: Female

DRUGS (6)
  1. ZYRTEC [Suspect]
     Active Substance: CETIRIZINE HYDROCHLORIDE
     Indication: COUGH
     Dosage: 2.5 ML IN THE MORNING AND 5 ML AT NIGHT
     Route: 048
     Dates: start: 201601, end: 20160212
  2. AVAMYS [Concomitant]
     Active Substance: FLUTICASONE FUROATE
     Indication: RHINITIS
     Route: 045
  3. SINGULAIR [Concomitant]
     Active Substance: MONTELUKAST SODIUM
     Indication: RHINITIS
     Route: 048
  4. SINGULAIR [Concomitant]
     Active Substance: MONTELUKAST SODIUM
     Indication: COUGH
     Route: 048
  5. ZYRTEC [Suspect]
     Active Substance: CETIRIZINE HYDROCHLORIDE
     Indication: RHINITIS
     Dosage: 2.5 ML IN THE MORNING AND 5 ML AT NIGHT
     Route: 048
     Dates: start: 201601, end: 20160212
  6. AVAMYS [Concomitant]
     Active Substance: FLUTICASONE FUROATE
     Indication: COUGH
     Route: 045

REACTIONS (3)
  - Agitation [Recovering/Resolving]
  - Excessive eye blinking [Recovering/Resolving]
  - Anxiety [Recovering/Resolving]

NARRATIVE: CASE EVENT DATE: 2016
